FAERS Safety Report 16037055 (Version 1)
Quarter: 2019Q1

REPORT INFORMATION
  Report Type: Report from Study
  Country: US (occurrence: US)
  Receive Date: 20190305
  Receipt Date: 20190305
  Transmission Date: 20190418
  Serious: Yes (Hospitalization, Other)
  Sender: FDA-Public Use
  Company Number: US-PFIZER INC-2019008062

PATIENT
  Age: 53 Year
  Sex: Male

DRUGS (1)
  1. SUTENT [Suspect]
     Active Substance: SUNITINIB MALATE
     Indication: RENAL CANCER
     Dosage: 37.5 MG, 1X/DAY
     Route: 048
     Dates: start: 20181227

REACTIONS (13)
  - Fatigue [Unknown]
  - White blood cell count decreased [Unknown]
  - Pulmonary embolism [Unknown]
  - Dyspepsia [Not Recovered/Not Resolved]
  - Blood calcium increased [Unknown]
  - Thrombosis [Unknown]
  - Headache [Unknown]
  - Epistaxis [Unknown]
  - Diarrhoea [Unknown]
  - Oral pain [Unknown]
  - Blood pressure increased [Unknown]
  - Cough [Recovering/Resolving]
  - Flushing [Unknown]

NARRATIVE: CASE EVENT DATE: 20181227
